FAERS Safety Report 7796813-9 (Version None)
Quarter: 2011Q4

REPORT INFORMATION
  Report Type: 
  Country: None (occurrence: None)
  Receive Date: 20111005
  Receipt Date: 20110926
  Transmission Date: 20120403
  Serious: Yes (Other)
  Sender: FDA-Public Use
  Company Number: US-BAYER-2011-091486

PATIENT
  Age: 26 Year
  Sex: Female

DRUGS (1)
  1. MIRENA [Suspect]
     Indication: MENSTRUAL DISORDER
     Dosage: 20 MCG/24HR, CONT
     Route: 015
     Dates: start: 20110815, end: 20110923

REACTIONS (9)
  - NAUSEA [None]
  - DECREASED APPETITE [None]
  - FATIGUE [None]
  - VOMITING [None]
  - HYPERSOMNIA [None]
  - HEADACHE [None]
  - PYREXIA [None]
  - ABDOMINAL PAIN [None]
  - BACK PAIN [None]
